FAERS Safety Report 15953006 (Version 1)
Quarter: 2019Q1

REPORT INFORMATION
  Report Type: Spontaneous
  Country: JP (occurrence: JP)
  Receive Date: 20190211
  Receipt Date: 20190211
  Transmission Date: 20190417
  Serious: Yes (Death)
  Sender: FDA-Public Use
  Company Number: JP-NAPPMUNDI-GBR-2019-0064060

PATIENT
  Sex: Male

DRUGS (2)
  1. MORPHINE HYDROCHLORIDE [Concomitant]
     Active Substance: MORPHINE HYDROCHLORIDE
     Indication: CANCER PAIN
     Dosage: 200 MG, DAILY
     Route: 041
     Dates: start: 201901, end: 20190131
  2. OXIFAST [Suspect]
     Active Substance: OXYCODONE
     Indication: CANCER PAIN
     Dosage: 500 MG, DAILY
     Route: 041
     Dates: start: 201901, end: 20190131

REACTIONS (1)
  - Soft tissue sarcoma [Fatal]

NARRATIVE: CASE EVENT DATE: 20190131
